FAERS Safety Report 5402074-8 (Version None)
Quarter: 2007Q3

REPORT INFORMATION
  Report Type: 
  Country: None (occurrence: None)
  Receive Date: 20070727
  Receipt Date: 20050817
  Transmission Date: 20080115
  Serious: Yes (Other)
  Sender: FDA-Public Use
  Company Number: THYM-10607

PATIENT
  Age: 53 Year
  Sex: Male
  Weight: 84 kg

DRUGS (6)
  1. THYMOGLOBULIN [Suspect]
     Indication: LIVER TRANSPLANT
     Dosage: 150 MG QD IV
     Route: 042
     Dates: start: 20050609, end: 20050627
  2. CELLCEPT [Concomitant]
  3. NEXIUM [Concomitant]
  4. MAGNESIUM OXIDE [Concomitant]
  5. BACTRIM [Concomitant]
  6. LASIX [Concomitant]

REACTIONS (1)
  - RENAL FAILURE [None]
